FAERS Safety Report 8808927 (Version 1)
Quarter: 2012Q4

REPORT INFORMATION
  Report Type: 
  Country: US (occurrence: US)
  Receive Date: 20120926
  Receipt Date: 20120926
  Transmission Date: 20130627
  Serious: Yes (Other)
  Sender: FDA-Public Use
  Company Number: US-SANOFI-AVENTIS-2012SA068485

PATIENT
  Sex: Female

DRUGS (3)
  1. FEXOFENADINE HYDROCHLORIDE [Suspect]
     Indication: SEASONAL ALLERGY
     Route: 048
     Dates: start: 20120917
  2. AMLODIPINE BESILATE [Concomitant]
     Indication: HYPERTENSION
  3. CARVEDILOL [Concomitant]
     Indication: BLOOD PRESSURE

REACTIONS (2)
  - Blood pressure increased [Unknown]
  - Somnolence [Unknown]
